FAERS Safety Report 6128357-4 (Version None)
Quarter: 2009Q1

REPORT INFORMATION
  Report Type: 
  Country: None (occurrence: None)
  Receive Date: 20090323
  Receipt Date: 20090312
  Transmission Date: 20090719
  Serious: Yes (Hospitalization)
  Sender: FDA-Public Use
  Company Number: B0566080A

PATIENT
  Sex: Female

DRUGS (8)
  1. AUGMENTIN '125' [Suspect]
     Indication: DRUG USE FOR UNKNOWN INDICATION
     Dosage: 625MG THREE TIMES PER DAY
     Route: 048
     Dates: start: 20080801, end: 20080902
  2. SEROPRAM [Suspect]
     Indication: SCHIZOAFFECTIVE DISORDER
     Dosage: 40MG PER DAY
     Route: 048
  3. CLOTIAPINE [Suspect]
     Indication: SCHIZOAFFECTIVE DISORDER
     Dosage: 40MG THREE TIMES PER DAY
     Route: 048
  4. HALDOL [Suspect]
     Indication: SCHIZOAFFECTIVE DISORDER
     Route: 030
  5. LAMICTAL [Concomitant]
     Dosage: 100MG PER DAY
     Route: 048
  6. LORAZEPAM [Concomitant]
     Dosage: 2.5MG THREE TIMES PER DAY
     Route: 048
  7. EFFORTIL [Concomitant]
     Dosage: 10MG PER DAY
     Route: 048
  8. ROCEPHIN [Concomitant]
     Route: 042

REACTIONS (4)
  - COMPLEX PARTIAL SEIZURES [None]
  - DYSARTHRIA [None]
  - HYPERTONIA [None]
  - SOMNOLENCE [None]
